FAERS Safety Report 7645479-7 (Version None)
Quarter: 2011Q3

REPORT INFORMATION
  Report Type: 
  Country: None (occurrence: None)
  Receive Date: 20110729
  Receipt Date: 20110718
  Transmission Date: 20111222
  Serious: Yes (Hospitalization, Other)
  Sender: FDA-Public Use
  Company Number: CH-ELI_LILLY_AND_COMPANY-CH201107005747

PATIENT
  Age: 42 Year
  Sex: Male

DRUGS (1)
  1. ZYPREXA [Suspect]
     Indication: SCHIZOPHRENIA
     Dosage: 10 MG, QD
     Dates: start: 20100501, end: 20110101

REACTIONS (6)
  - MUSCULAR WEAKNESS [None]
  - NAUSEA [None]
  - DIZZINESS [None]
  - PERSONALITY DISORDER [None]
  - PSYCHOTIC DISORDER [None]
  - ALTERED STATE OF CONSCIOUSNESS [None]
